FAERS Safety Report 18205046 (Version 1)
Quarter: 2020Q3

REPORT INFORMATION
  Report Type: Spontaneous
  Country: US (occurrence: US)
  Receive Date: 20200828
  Receipt Date: 20200828
  Transmission Date: 20201103
  Serious: Yes (Other)
  Sender: FDA-Public Use
  Company Number: US-ROCHE-2665716

PATIENT
  Sex: Male

DRUGS (5)
  1. NORCO [Concomitant]
     Active Substance: ACETAMINOPHEN\HYDROCODONE BITARTRATE
  2. MORPHINE [Concomitant]
     Active Substance: MORPHINE
  3. LORTAB [Concomitant]
     Active Substance: ACETAMINOPHEN\HYDROCODONE BITARTRATE
  4. TYLENOL [Concomitant]
     Active Substance: ACETAMINOPHEN
  5. VALIUM [Suspect]
     Active Substance: DIAZEPAM
     Indication: PRODUCT USED FOR UNKNOWN INDICATION
     Route: 065

REACTIONS (5)
  - Emotional disorder [Unknown]
  - Drug abuse [Unknown]
  - Loss of consciousness [Unknown]
  - Behaviour disorder [Unknown]
  - Memory impairment [Unknown]
